FAERS Safety Report 16138768 (Version 3)
Quarter: 2019Q2

REPORT INFORMATION
  Report Type: Report from Study
  Country: BE (occurrence: BE)
  Receive Date: 20190401
  Receipt Date: 20190415
  Transmission Date: 20190711
  Serious: Yes (Hospitalization)
  Sender: FDA-Public Use
  Company Number: BE-ROCHE-2227770

PATIENT
  Age: 70 Year
  Sex: Female
  Weight: 42 kg

DRUGS (26)
  1. ATEZOLIZUMAB. [Suspect]
     Active Substance: ATEZOLIZUMAB
     Indication: NON-SMALL CELL LUNG CANCER
     Dosage: MOST RECENT DOSE OF 04/DEC/2018
     Route: 042
     Dates: start: 20181113
  2. DYNATONIC [Concomitant]
     Route: 048
     Dates: start: 20181005
  3. MEDROL [Concomitant]
     Active Substance: METHYLPREDNISOLONE
     Route: 048
     Dates: end: 20181109
  4. MEDROL [Concomitant]
     Active Substance: METHYLPREDNISOLONE
     Route: 048
     Dates: start: 20190115, end: 20190121
  5. CETISANDOZ [Concomitant]
     Indication: ANAPHYLACTIC REACTION
     Route: 048
     Dates: start: 20181213, end: 20181213
  6. KAYEXALATE [Concomitant]
     Active Substance: SODIUM POLYSTYRENE SULFONATE
     Route: 048
     Dates: start: 20190102, end: 20190103
  7. LACTULOSE. [Concomitant]
     Active Substance: LACTULOSE
     Indication: PROPHYLAXIS
     Route: 048
     Dates: start: 20190118
  8. MEDROL [Concomitant]
     Active Substance: METHYLPREDNISOLONE
     Route: 048
     Dates: start: 20181221, end: 20181228
  9. AMLOR [Concomitant]
     Active Substance: AMLODIPINE BESYLATE
     Route: 048
     Dates: start: 20190206
  10. KALIUM RETARD [Concomitant]
     Indication: HYPOKALAEMIA
     Route: 048
     Dates: start: 20190104, end: 20190104
  11. SOLU-MEDROL [Concomitant]
     Active Substance: METHYLPREDNISOLONE SODIUM SUCCINATE
     Route: 042
     Dates: start: 20181206, end: 20181206
  12. DUOVENT [Concomitant]
     Active Substance: FENOTEROL HYDROBROMIDE
     Dosage: 1 INHALATION
     Route: 045
     Dates: start: 20180323
  13. CLOZAN [Concomitant]
     Route: 048
     Dates: start: 20180323
  14. SMOFKABIVEN [Concomitant]
     Active Substance: AMINO ACIDS\DEXTROSE\ELECTROLYTES NOS\SOYBEAN OIL
     Route: 042
     Dates: start: 20190219
  15. OXYGEN. [Concomitant]
     Active Substance: OXYGEN
     Dosage: 1.5 OTHER
     Route: 045
     Dates: start: 20180530
  16. RANITIDINE. [Concomitant]
     Active Substance: RANITIDINE
     Route: 048
     Dates: start: 20180323
  17. MEDROL [Concomitant]
     Active Substance: METHYLPREDNISOLONE
     Route: 048
     Dates: start: 20190103, end: 20190114
  18. FRAXIPARINE [Concomitant]
     Active Substance: NADROPARIN CALCIUM
     Indication: PROPHYLAXIS
     Route: 058
     Dates: start: 20181206
  19. KALIUM RETARD [Concomitant]
     Route: 048
     Dates: start: 20190108, end: 20190110
  20. SERETIDE [Concomitant]
     Active Substance: FLUTICASONE PROPIONATE\SALMETEROL XINAFOATE
     Dosage: 1 INHALATION
     Route: 065
     Dates: start: 20180323
  21. AZITHROMYCIN ANHYDROUS. [Concomitant]
     Active Substance: AZITHROMYCIN ANHYDROUS
     Indication: PROPHYLAXIS
     Route: 048
     Dates: start: 20180926
  22. SPIRIVA [Concomitant]
     Active Substance: TIOTROPIUM BROMIDE MONOHYDRATE
     Route: 045
     Dates: start: 20180323
  23. MEDROL [Concomitant]
     Active Substance: METHYLPREDNISOLONE
     Route: 048
     Dates: start: 20181229, end: 20190102
  24. D-CURE [Concomitant]
     Active Substance: CHOLECALCIFEROL
     Route: 048
     Dates: start: 20180323
  25. AZITHROMYCIN ANHYDROUS. [Concomitant]
     Active Substance: AZITHROMYCIN ANHYDROUS
     Route: 048
     Dates: start: 20180926
  26. ISOTEN MINOR [Concomitant]
     Route: 048
     Dates: start: 20181212

REACTIONS (1)
  - Pneumonitis [Recovered/Resolved]

NARRATIVE: CASE EVENT DATE: 20181206
